FAERS Safety Report 8063588-8 (Version None)
Quarter: 2012Q1

REPORT INFORMATION
  Report Type: 
  Country: None (occurrence: None)
  Receive Date: 20120123
  Receipt Date: 20120113
  Transmission Date: 20120608
  Serious: Yes (Other)
  Sender: FDA-Public Use
  Company Number: US-US-EMD SERONO, INC.-7107203

PATIENT
  Sex: Female

DRUGS (6)
  1. BENADRYL [Concomitant]
     Indication: PREMEDICATION
  2. METFORMIN HCL [Concomitant]
     Indication: DIABETES MELLITUS
  3. GLIPIZIDE [Concomitant]
     Indication: DIABETES MELLITUS
  4. REBIF [Suspect]
     Route: 058
     Dates: start: 20111101
  5. REBIF [Suspect]
     Indication: MULTIPLE SCLEROSIS
     Route: 058
     Dates: start: 20060421, end: 20110701
  6. ACETAMINOPHEN [Concomitant]
     Indication: PREMEDICATION

REACTIONS (7)
  - PERONEAL NERVE PALSY [None]
  - BLOOD CHOLESTEROL INCREASED [None]
  - MULTIPLE SCLEROSIS [None]
  - INFLUENZA LIKE ILLNESS [None]
  - DIABETES MELLITUS [None]
  - INJECTION SITE PAIN [None]
  - INFLUENZA [None]
